FAERS Safety Report 7889444-3 (Version None)
Quarter: 2011Q4

REPORT INFORMATION
  Report Type: 
  Country: None (occurrence: None)
  Receive Date: 20111103
  Receipt Date: 20111025
  Transmission Date: 20120403
  Serious: Yes (Hospitalization, Other)
  Sender: FDA-Public Use
  Company Number: US-CELGENEUS-163-21880-11100113

PATIENT
  Sex: Male
  Weight: 83.99 kg

DRUGS (29)
  1. LEVOFLOXACIN [Concomitant]
     Dosage: 250 MILLIGRAM
     Route: 048
  2. PROMETHAZINE HCL [Concomitant]
     Indication: NAUSEA
     Dosage: 25 MILLIGRAM
     Route: 048
  3. TRIAMTERENE AND HYDROCHLOROTHIAZIDE [Concomitant]
     Dosage: 37.5-25 MG
     Route: 048
  4. ANTIBIOTICS [Concomitant]
     Route: 065
  5. CALCITONIN SALMON [Concomitant]
     Dosage: 200/DOSE
     Route: 045
  6. ASCORBIC ACID [Concomitant]
     Route: 048
  7. ALLOPURINOL [Concomitant]
     Dosage: 100 MILLIGRAM
     Route: 048
  8. CHOLECALCIFEROL [Concomitant]
     Dosage: 5000 IU (INTERNATIONAL UNIT)
     Route: 048
  9. VELCADE [Concomitant]
     Route: 065
  10. ASPIRIN [Concomitant]
     Dosage: 81 MILLIGRAM
     Route: 048
  11. DEXAMETHASONE [Concomitant]
     Dosage: 4 TABLET
     Route: 048
  12. LOVAZA [Concomitant]
     Dosage: 1000 MILLIGRAM
     Route: 048
  13. VITAMIN D [Concomitant]
     Route: 065
  14. CALCIUM CARBONATE [Concomitant]
     Dosage: 600 MILLIGRAM
     Route: 048
  15. FLOMAX [Concomitant]
     Dosage: .4 MILLIGRAM
     Route: 048
  16. REGLAN [Concomitant]
     Dosage: 10 MILLIGRAM
     Route: 048
  17. CO Q-10 [Concomitant]
     Dosage: 300 MILLIGRAM
     Route: 048
  18. KEFLEX [Concomitant]
     Dosage: 500 MILLIGRAM
     Route: 048
  19. MEGESTROL ACETATE [Concomitant]
     Dosage: 40 MILLIGRAM
     Route: 048
  20. PREVACID [Concomitant]
     Route: 065
  21. ALL OTHER THERAPEUTIC PRODUCTS [Concomitant]
     Dosage: 10 MILLILITER
     Route: 065
  22. MAGNESIUM CHLORIDE [Concomitant]
     Route: 048
  23. REVLIMID [Suspect]
     Indication: MULTIPLE MYELOMA
     Dosage: 25 MILLIGRAM
     Route: 048
     Dates: start: 20110909
  24. SIMVASTATIN [Concomitant]
     Dosage: 10 MILLIGRAM
     Route: 048
  25. ESOMEPRAZOLE [Concomitant]
     Dosage: 40 MILLIGRAM
     Route: 048
  26. AMITRIPTYLINE HCL [Concomitant]
     Dosage: 25 MILLIGRAM
     Route: 048
  27. FINASTERIDE [Concomitant]
     Dosage: 5 MILLIGRAM
     Route: 048
  28. SUCRALFATE [Concomitant]
     Dosage: 1 GRAM
     Route: 048
  29. FISH OIL [Concomitant]
     Route: 065

REACTIONS (6)
  - RASH [None]
  - HYPOTENSION [None]
  - OESOPHAGITIS [None]
  - DECREASED APPETITE [None]
  - DRY SKIN [None]
  - PANCYTOPENIA [None]
